FAERS Safety Report 14233823 (Version 1)
Quarter: 2017Q4

REPORT INFORMATION
  Report Type: Spontaneous
  Country: FR (occurrence: FR)
  Receive Date: 20171129
  Receipt Date: 20171129
  Transmission Date: 20180321
  Serious: Yes (Other)
  Sender: FDA-Public Use
  Company Number: FR-MYLANLABS-2017M1074763

PATIENT
  Age: 44 Year
  Sex: Male

DRUGS (9)
  1. VINCRISTINE [Suspect]
     Active Substance: VINCRISTINE
     Indication: T-CELL LYMPHOMA STAGE IV
     Dosage: CHOP REGIMEN; RECEIVED 4 CYCLES
     Route: 065
  2. DEXAMETHASONE. [Suspect]
     Active Substance: DEXAMETHASONE
     Indication: T-CELL LYMPHOMA STAGE IV
     Dosage: DHAC REGIMEN; 2 CYCLES
     Route: 065
  3. CARBOPLATIN. [Concomitant]
     Active Substance: CARBOPLATIN
     Indication: T-CELL LYMPHOMA STAGE IV
     Dosage: DHAC REGIMEN; 2 CYCLES
     Route: 065
  4. ETOPOSIDE. [Concomitant]
     Active Substance: ETOPOSIDE
     Indication: T-CELL LYMPHOMA STAGE IV
     Dosage: CEP REGIMEN; 1 CYCLE
     Route: 065
  5. BRENTUXIMAB VEDOTIN [Suspect]
     Active Substance: BRENTUXIMAB VEDOTIN
     Indication: T-CELL LYMPHOMA STAGE IV
     Dosage: 3 CYCLES
     Route: 050
  6. CYCLOPHOSPHAMIDE. [Suspect]
     Active Substance: CYCLOPHOSPHAMIDE
     Indication: T-CELL LYMPHOMA STAGE IV
     Dosage: CHOP REGIME (4 CYCLES) AND CEP REGIMEN (1 CYCLE)
     Route: 065
  7. DOXORUBICIN [Concomitant]
     Active Substance: DOXORUBICIN
     Indication: T-CELL LYMPHOMA STAGE IV
     Dosage: CHOP REGIMEN; RECEIVED 4 CYCLES
     Route: 065
  8. PREDNISONE. [Suspect]
     Active Substance: PREDNISONE
     Indication: T-CELL LYMPHOMA STAGE IV
     Dosage: CHOP REGIME (4 CYCLES) AND CEP REGIMEN (1 CYCLE)
     Route: 065
  9. CYTARABINE. [Concomitant]
     Active Substance: CYTARABINE
     Indication: T-CELL LYMPHOMA STAGE IV
     Dosage: DHAC REGIMEN; 2 CYCLES
     Route: 065

REACTIONS (5)
  - Hepatitis [Unknown]
  - Cytomegalovirus chorioretinitis [Unknown]
  - Septic shock [Unknown]
  - Blindness [Unknown]
  - Pneumonia [Unknown]
